FAERS Safety Report 8886796 (Version 1)
Quarter: 2012Q4

REPORT INFORMATION
  Report Type: Report from Study
  Country: IE (occurrence: IE)
  Receive Date: 20121105
  Receipt Date: 20121105
  Transmission Date: 20130627
  Serious: Yes (Hospitalization)
  Sender: FDA-Public Use
  Company Number: IE-ROCHE-1151578

PATIENT
  Age: 53 Year
  Sex: Female

DRUGS (4)
  1. TRASTUZUMAB [Suspect]
     Indication: BREAST NEOPLASM
     Route: 042
     Dates: start: 20121005
  2. LAPATINIB [Suspect]
     Indication: BREAST NEOPLASM
     Route: 048
     Dates: start: 20121005
  3. DOCETAXEL [Suspect]
     Indication: BREAST NEOPLASM
     Route: 042
     Dates: start: 20121005
  4. CARBOPLATIN [Suspect]
     Indication: BREAST NEOPLASM
     Route: 042
     Dates: start: 20121005

REACTIONS (6)
  - Neutropenic sepsis [Recovered/Resolved]
  - Diarrhoea [Recovered/Resolved]
  - Anaemia [Recovered/Resolved]
  - Rash maculo-papular [Not Recovered/Not Resolved]
  - Hyponatraemia [Recovered/Resolved]
  - Hypokalaemia [Recovered/Resolved]
